FAERS Safety Report 11351006 (Version 1)
Quarter: 2015Q3

REPORT INFORMATION
  Report Type: Spontaneous
  Country: US (occurrence: None)
  Receive Date: 20150709
  Receipt Date: 20150709
  Transmission Date: 20151125
  Serious: Yes (Hospitalization, Other)
  Sender: FDA-Public Use
  Company Number: PHEH2014US016446

PATIENT
  Age: 71 Year
  Sex: Female

DRUGS (1)
  1. GLEEVEC [Suspect]
     Active Substance: IMATINIB MESYLATE
     Indication: LYMPHOMA
     Dates: start: 20140709

REACTIONS (5)
  - Swollen tongue [None]
  - Lip swelling [None]
  - Local swelling [None]
  - Ageusia [None]
  - Face oedema [None]

NARRATIVE: CASE EVENT DATE: 20140725
